FAERS Safety Report 15878893 (Version 1)
Quarter: 2019Q1

REPORT INFORMATION
  Report Type: Spontaneous
  Country: US (occurrence: US)
  Receive Date: 20190125
  Receipt Date: 20190125
  Transmission Date: 20190417
  Serious: Yes (Disabling)
  Sender: FDA-Public Use
  Company Number: None

PATIENT
  Age: 50 Year
  Sex: Male
  Weight: 117 kg

DRUGS (8)
  1. BACTRIM [Concomitant]
     Active Substance: SULFAMETHOXAZOLE\TRIMETHOPRIM
  2. KEFLEX [Concomitant]
     Active Substance: CEPHALEXIN
  3. LISINOPRIL. [Concomitant]
     Active Substance: LISINOPRIL
  4. METFORMIN [Concomitant]
     Active Substance: METFORMIN HYDROCHLORIDE
  5. FARXIGA [Suspect]
     Active Substance: DAPAGLIFLOZIN PROPANEDIOL
     Indication: DIABETES MELLITUS
     Route: 048
     Dates: end: 20181125
  6. ATORVASTATIN [Concomitant]
     Active Substance: ATORVASTATIN
  7. BYDUREON [Concomitant]
     Active Substance: EXENATIDE
  8. BC (ASPIRIN\CAFFEINE) [Concomitant]
     Active Substance: ASPIRIN\CAFFEINE

REACTIONS (4)
  - Toe amputation [None]
  - Osteomyelitis [None]
  - Foot deformity [None]
  - Skin ulcer [None]

NARRATIVE: CASE EVENT DATE: 20181125
